FAERS Safety Report 10263130 (Version 2)
Quarter: 2014Q2

REPORT INFORMATION
  Report Type: Report from Study
  Country: US (occurrence: US)
  Receive Date: 20140626
  Receipt Date: 20140626
  Transmission Date: 20141212
  Serious: Yes (Other)
  Sender: FDA-Public Use
  Company Number: US-MYLANLABS-2014S1002462

PATIENT
  Age: 49 Year
  Sex: Male
  Weight: 77.11 kg

DRUGS (11)
  1. CLOZAPINE TABLETS [Suspect]
     Indication: SCHIZOPHRENIA
     Route: 048
     Dates: end: 20140129
  2. CLOZAPINE TABLETS [Suspect]
     Indication: SCHIZOPHRENIA
     Route: 048
     Dates: start: 20140203
  3. ZOLOFT [Concomitant]
     Route: 048
  4. LASIX [Concomitant]
     Route: 048
  5. DIGOXIN [Concomitant]
     Route: 048
  6. SYNTHROID [Concomitant]
     Route: 048
  7. LOPID [Concomitant]
     Route: 048
  8. XANAX [Concomitant]
     Route: 048
  9. HALDOL [Concomitant]
     Route: 048
     Dates: start: 20140131
  10. POTASSIUM [Concomitant]
     Route: 048
  11. COLACE [Concomitant]

REACTIONS (2)
  - Granulocytopenia [Recovered/Resolved]
  - Leukopenia [Recovered/Resolved]
